FAERS Safety Report 6698582-2 (Version None)
Quarter: 2010Q2

REPORT INFORMATION
  Report Type: 
  Country: None (occurrence: None)
  Receive Date: 20100427
  Receipt Date: 20100414
  Transmission Date: 20101027
  Serious: Yes (Life-Threatening)
  Sender: FDA-Public Use
  Company Number: FR-BRACCO-000351

PATIENT
  Sex: Male

DRUGS (15)
  1. SIMVASTATIN [Concomitant]
     Route: 048
     Dates: end: 20100226
  2. CROMOLYN SODIUM [Concomitant]
     Dosage: 1 DROP A DAY IN EACH EYE.
  3. MULTIHANCE [Suspect]
     Indication: NUCLEAR MAGNETIC RESONANCE IMAGING BRAIN
     Route: 042
     Dates: start: 20091218, end: 20091218
  4. MULTIHANCE [Suspect]
     Indication: BASILAR ARTERY STENOSIS
     Route: 042
     Dates: start: 20091218, end: 20091218
  5. KARDEGIC [Concomitant]
  6. DIFFU K [Concomitant]
  7. ALLOPURINOL [Concomitant]
     Route: 048
  8. PIASCLEDINE [Concomitant]
  9. CORENITEC [Concomitant]
     Route: 048
  10. NOOTROPIL [Concomitant]
  11. AUGMENTIN '125' [Concomitant]
     Dosage: 1 G TID BY MOUTH (DAY 2/7)
     Route: 048
  12. CALCIPARINE [Concomitant]
     Route: 058
  13. ASPEGIC 1000 [Concomitant]
     Route: 048
  14. NEXIUM [Concomitant]
     Dosage: BY MOUTH
     Route: 048
  15. BRICANYL COMP. [Concomitant]
     Route: 050

REACTIONS (20)
  - ACTIVATED PARTIAL THROMBOPLASTIN TIME PROLONGED [None]
  - AGITATION [None]
  - ATELECTASIS [None]
  - BLOOD CALCIUM DECREASED [None]
  - BLOOD CHLORIDE INCREASED [None]
  - BLOOD GLUCOSE INCREASED [None]
  - BLOOD LACTATE DEHYDROGENASE INCREASED [None]
  - BLOOD MAGNESIUM DECREASED [None]
  - BLOOD PHOSPHORUS DECREASED [None]
  - BLOOD SODIUM INCREASED [None]
  - CARBON DIOXIDE DECREASED [None]
  - CARDIO-RESPIRATORY ARREST [None]
  - HYPOKALAEMIA [None]
  - HYPOTHERMIA [None]
  - METABOLIC ACIDOSIS [None]
  - MICROLITHIASIS [None]
  - PANCREATITIS [None]
  - RENAL FAILURE [None]
  - RENAL FAILURE ACUTE [None]
  - VENTRICULAR ARRHYTHMIA [None]
